FAERS Safety Report 6675399-6 (Version None)
Quarter: 2010Q2

REPORT INFORMATION
  Report Type: 
  Country: None (occurrence: None)
  Receive Date: 20100409
  Receipt Date: 20100330
  Transmission Date: 20101027
  Serious: Yes (Hospitalization, Other)
  Sender: FDA-Public Use
  Company Number: GB-PFIZER INC-2010004658

PATIENT
  Age: 74 Year
  Sex: Female
  Weight: 62 kg

DRUGS (18)
  1. BLINDED *NO SUBJECT DRUG [Suspect]
     Indication: PULMONARY ARTERIAL HYPERTENSION
     Dosage: UNK
     Route: 048
     Dates: start: 20091209
  2. BLINDED *PLACEBO [Suspect]
     Indication: PULMONARY ARTERIAL HYPERTENSION
     Dosage: UNK
     Route: 048
     Dates: start: 20091209
  3. SILDENAFIL CITRATE [Suspect]
     Indication: PULMONARY ARTERIAL HYPERTENSION
     Dosage: UNK
     Route: 048
     Dates: start: 20091209
  4. BLINDED *NO SUBJECT DRUG [Suspect]
     Dosage: UNK
     Dates: start: 20091229
  5. BLINDED *PLACEBO [Suspect]
     Dosage: UNK
     Dates: start: 20091229
  6. SILDENAFIL CITRATE [Suspect]
     Dosage: UNK
     Dates: start: 20091229
  7. PREDNISOLONE [Concomitant]
     Dosage: 4 MG, UNK
     Route: 048
     Dates: start: 20080312
  8. BISOPROLOL [Concomitant]
     Dosage: 2.5 MG, UNK
     Route: 048
     Dates: start: 20050721
  9. OMEPRAZOLE [Concomitant]
     Dosage: 20 MG, UNK
     Dates: start: 20080312
  10. RISEDRONATE SODIUM [Concomitant]
     Dosage: 2.5 MG, UNK
     Route: 048
     Dates: start: 20081110
  11. ACETYLSALICYLIC ACID [Concomitant]
     Dosage: 75 MG, UNK
     Route: 048
     Dates: start: 20041110
  12. RAMIPRIL [Concomitant]
     Dosage: 5 MG, UNK
     Route: 048
     Dates: start: 20050915
  13. FLECAINIDE [Concomitant]
     Dosage: 50 MG, UNK
     Route: 048
     Dates: start: 20091028
  14. SIMVASTATIN [Concomitant]
     Dosage: 40 MG, UNK
     Route: 048
     Dates: start: 20051107
  15. DEXAMETHASONE [Concomitant]
     Dosage: UNK
     Route: 047
  16. OFLOXACIN [Concomitant]
     Dosage: UNK
     Route: 047
  17. LIQUIFILM TEARS [Concomitant]
     Dosage: UNK
     Route: 047
  18. ILUBE [Concomitant]
     Dosage: UNK
     Route: 047

REACTIONS (1)
  - ANKLE FRACTURE [None]
